FAERS Safety Report 10543743 (Version 1)
Quarter: 2014Q4

REPORT INFORMATION
  Report Type: Spontaneous
  Country: BR (occurrence: None)
  Receive Date: 20141023
  Receipt Date: 20141023
  Transmission Date: 20150529
  Serious: Yes (Other)
  Sender: FDA-Public Use
  Company Number: 7328351

PATIENT
  Age: 44 Year
  Sex: Female

DRUGS (1)
  1. LEVOTHYROXINE SODIUM (LEVOTHYROXINE SODIUM) (TABLET) (LEVOTHYROXINE SODIUM), BR52300 [Suspect]
     Active Substance: LEVOTHYROXINE SODIUM
     Indication: HORMONE REPLACEMENT THERAPY
     Dates: start: 2010

REACTIONS (3)
  - Tremor [None]
  - Diabetes mellitus [None]
  - Hypertension [None]

NARRATIVE: CASE EVENT DATE: 2010
